FAERS Safety Report 25196818 (Version 1)
Quarter: 2025Q2

REPORT INFORMATION
  Report Type: Spontaneous
  Country: PL (occurrence: PL)
  Receive Date: 20250415
  Receipt Date: 20250415
  Transmission Date: 20250716
  Serious: Yes (Other)
  Sender: GENMAB
  Company Number: PL-ABBVIE-6216357

PATIENT
  Age: 41 Year
  Sex: Male

DRUGS (1)
  1. EPCORITAMAB [Suspect]
     Active Substance: EPCORITAMAB
     Indication: B-cell lymphoma
     Route: 058

REACTIONS (1)
  - B-cell lymphoma [Unknown]
